FAERS Safety Report 17668444 (Version 1)
Quarter: 2020Q2

REPORT INFORMATION
  Report Type: Spontaneous
  Country: ES (occurrence: ES)
  Receive Date: 20200414
  Receipt Date: 20200414
  Transmission Date: 20200713
  Serious: Yes (Other)
  Sender: FDA-Public Use
  Company Number: ES-AUROBINDO-AUR-APL-2020-018172

PATIENT
  Age: 14 Month
  Sex: Male

DRUGS (1)
  1. PARACETAMOL [Suspect]
     Active Substance: ACETAMINOPHEN
     Indication: STOMATITIS
     Dosage: UNK
     Route: 065

REACTIONS (3)
  - Cyanosis central [Unknown]
  - Pallor [Unknown]
  - Methaemoglobinaemia [Unknown]
